FAERS Safety Report 8589194-4 (Version None)
Quarter: 2012Q3

REPORT INFORMATION
  Report Type: 
  Country: None (occurrence: None)
  Receive Date: 20120813
  Receipt Date: 20120801
  Transmission Date: 20120928
  Serious: No
  Sender: FDA-Public Use
  Company Number: JP-UCBSA-063302

PATIENT
  Age: 74 Year
  Sex: Female

DRUGS (11)
  1. DIOVAN [Concomitant]
     Dosage: DAILY DOSE: 160 MG
     Route: 048
  2. LANSOPRAZOLE [Concomitant]
     Dosage: DAILY DOSE:15 MG
  3. LIPITOR [Concomitant]
     Dosage: DAILY DOSE: 10 MG
     Route: 048
  4. LEVOTHYROXINE SODIUM [Concomitant]
     Dosage: DAILY DOSE: 75 MCG
     Route: 048
  5. ASPIRIN [Concomitant]
     Dosage: DAILY DOSE: 100 MG
     Route: 048
  6. AMLODIPINE BESYLATE [Concomitant]
     Dosage: DAILY DOSE: 5 MG
     Route: 048
  7. WARFARIN SODIUM [Concomitant]
     Dosage: DAILY DOSE: 2.5 MG
     Route: 048
  8. CLONAZEPAM [Concomitant]
     Dosage: DAILY DOSE: 0.5MG
     Route: 048
  9. KEPPRA [Suspect]
     Indication: EPILEPSY
     Route: 048
     Dates: start: 20120605, end: 20120627
  10. KEPPRA [Suspect]
     Route: 048
     Dates: start: 20120628, end: 20120628
  11. DEPAKENE [Concomitant]
     Dosage: DAILY DOSE:600 MG
     Route: 048

REACTIONS (1)
  - PLATELET COUNT DECREASED [None]
